FAERS Safety Report 8612427-2 (Version None)
Quarter: 2012Q3

REPORT INFORMATION
  Report Type: 
  Country: None (occurrence: None)
  Receive Date: 20120822
  Receipt Date: 20120820
  Transmission Date: 20120928
  Serious: Yes (Other)
  Sender: FDA-Public Use
  Company Number: US-PFIZER INC-2012204858

PATIENT
  Age: 44 Year
  Sex: Female
  Weight: 104.3 kg

DRUGS (9)
  1. LYRICA [Suspect]
     Indication: FIBROMYALGIA
     Dosage: 150 MG, 2X/DAY
     Route: 048
     Dates: start: 20100501
  2. LYRICA [Suspect]
     Dosage: UNK
     Route: 048
  3. CHANTIX [Concomitant]
     Indication: SMOKING CESSATION THERAPY
     Dosage: UNK
  4. DIAZEPAM [Concomitant]
     Dosage: UNK
  5. SIMVASTATIN [Concomitant]
     Dosage: UNK
  6. PLAVIX [Concomitant]
     Dosage: UNK
  7. HYDROCODONE [Concomitant]
     Dosage: 10 MG, UNK
  8. METOPROLOL [Concomitant]
     Dosage: UNK
  9. ASPIRIN [Concomitant]
     Dosage: 325 MG, 1X/DAY

REACTIONS (2)
  - CORONARY ARTERY OCCLUSION [None]
  - MYOCARDIAL INFARCTION [None]
